FAERS Safety Report 18608013 (Version 1)
Quarter: 2020Q4

REPORT INFORMATION
  Report Type: Spontaneous
  Country: US (occurrence: US)
  Receive Date: 20201212
  Receipt Date: 20201212
  Transmission Date: 20210114
  Serious: Yes (Other)
  Sender: FDA-Public Use
  Company Number: US-DRREDDYS-USA/USA/20/0129832

PATIENT
  Age: 63 Year
  Sex: Female
  Weight: 63.9 kg

DRUGS (2)
  1. NARATRIPTAN [Concomitant]
     Active Substance: NARATRIPTAN HYDROCHLORIDE
     Indication: PRODUCT USED FOR UNKNOWN INDICATION
  2. SUMATRIPTAN INJECTION USP, 6 MG/0.5 ML [Suspect]
     Active Substance: SUMATRIPTAN
     Indication: MIGRAINE
     Dosage: 6 MG/0.5 ML
     Dates: start: 20201207

REACTIONS (5)
  - Pain in extremity [Unknown]
  - Product quality issue [Unknown]
  - Product dose omission issue [Unknown]
  - Air embolism [Unknown]
  - Oedema peripheral [Unknown]
